FAERS Safety Report 7267399-2 (Version None)
Quarter: 2011Q1

REPORT INFORMATION
  Report Type: 
  Country: None (occurrence: None)
  Receive Date: 20110201
  Receipt Date: 20101011
  Transmission Date: 20110831
  Serious: No
  Sender: FDA-Public Use
  Company Number: A0885892A

PATIENT
  Age: 52 Year
  Sex: Male

DRUGS (4)
  1. PROZAC [Concomitant]
  2. ASPIRIN [Concomitant]
     Dosage: 325MG PER DAY
  3. ARIXTRA [Suspect]
     Dosage: 7.5MG PER DAY
     Route: 058
     Dates: start: 20100917, end: 20100923
  4. PLAVIX [Concomitant]

REACTIONS (2)
  - INJECTION SITE HAEMATOMA [None]
  - INJECTION SITE PAIN [None]
